FAERS Safety Report 9576136 (Version 1)
Quarter: 2013Q4

REPORT INFORMATION
  Report Type: Spontaneous
  Country: US (occurrence: US)
  Receive Date: 20131001
  Receipt Date: 20131001
  Transmission Date: 20140711
  Serious: No
  Sender: FDA-Public Use
  Company Number: US-AMGEN-USASP2013001341

PATIENT
  Age: 37 Year
  Sex: Female

DRUGS (2)
  1. ENBREL [Suspect]
     Indication: PSORIASIS
     Dosage: UNK
     Dates: start: 20060929, end: 2010
  2. HUMIRA [Concomitant]
     Dosage: UNK

REACTIONS (2)
  - Skin plaque [Recovered/Resolved]
  - Psoriasis [Not Recovered/Not Resolved]
